FAERS Safety Report 8256731-9 (Version None)
Quarter: 2012Q2

REPORT INFORMATION
  Report Type: 
  Country: None (occurrence: None)
  Receive Date: 20120403
  Receipt Date: 20120328
  Transmission Date: 20120825
  Serious: Yes (Other)
  Sender: FDA-Public Use
  Company Number: AU-JNJFOC-20120311687

PATIENT

DRUGS (5)
  1. PROTON PUMP INHIBITOR [Concomitant]
     Indication: PROPHYLAXIS AGAINST GASTROINTESTINAL ULCER
     Route: 065
  2. ANTHRACYCLINE [Suspect]
     Indication: ACUTE MYELOID LEUKAEMIA
     Route: 065
  3. NEUPOGEN [Concomitant]
     Indication: PROPHYLAXIS
     Route: 065
  4. ITRACONAZOLE [Suspect]
     Indication: ANTIFUNGAL PROPHYLAXIS
     Dosage: FOR 23 DAYS
     Route: 048
  5. CYTARABINE [Suspect]
     Indication: ACUTE MYELOID LEUKAEMIA
     Route: 065

REACTIONS (1)
  - FUNGAL SEPSIS [None]
